FAERS Safety Report 18849599 (Version 1)
Quarter: 2021Q1

REPORT INFORMATION
  Report Type: Spontaneous
  Country: CZ (occurrence: CZ)
  Receive Date: 20210204
  Receipt Date: 20210204
  Transmission Date: 20210419
  Serious: Yes (Hospitalization, Other)
  Sender: FDA-Public Use
  Company Number: CZ-TEVA-2021-CZ-1874078

PATIENT
  Age: 69 Year
  Sex: Female

DRUGS (4)
  1. DOCETAXEL. [Suspect]
     Active Substance: DOCETAXEL
     Indication: INVASIVE DUCTAL BREAST CARCINOMA
     Dosage: 2 TIMES 100 MG / M2
     Route: 065
  2. LETROZOLE. [Suspect]
     Active Substance: LETROZOLE
     Indication: INVASIVE DUCTAL BREAST CARCINOMA
     Route: 065
  3. METFORMIN [Concomitant]
     Active Substance: METFORMIN HYDROCHLORIDE
     Indication: TYPE 2 DIABETES MELLITUS
  4. AC REGIMEN [Concomitant]
     Indication: INVASIVE DUCTAL BREAST CARCINOMA
     Dosage: 4 TIMES DOXORUBICIN 60 MG / M2 + CYCLOPHOSPHAMIDE 600 MG / M2

REACTIONS (3)
  - Hypersensitivity [Unknown]
  - Myalgia [Unknown]
  - Dermatitis allergic [Unknown]
